FAERS Safety Report 24942271 (Version 1)
Quarter: 2025Q1

REPORT INFORMATION
  Report Type: Spontaneous
  Country: US (occurrence: US)
  Receive Date: 20250207
  Receipt Date: 20250207
  Transmission Date: 20250408
  Serious: Yes (Other)
  Sender: DR REDDYS
  Company Number: US-DRL-USA-USA/2025/02/002020

PATIENT
  Sex: Male

DRUGS (4)
  1. AZACITIDINE [Suspect]
     Active Substance: AZACITIDINE
     Indication: Acute myeloid leukaemia
  2. MIDOSTAURIN [Suspect]
     Active Substance: MIDOSTAURIN
     Indication: Acute myeloid leukaemia
  3. MIDOSTAURIN [Suspect]
     Active Substance: MIDOSTAURIN
  4. MIDOSTAURIN [Suspect]
     Active Substance: MIDOSTAURIN

REACTIONS (2)
  - Drug intolerance [Unknown]
  - Drug ineffective for unapproved indication [Unknown]
